FAERS Safety Report 14327243 (Version 10)
Quarter: 2019Q2

REPORT INFORMATION
  Report Type: Spontaneous
  Country: US (occurrence: US)
  Receive Date: 20171227
  Receipt Date: 20190430
  Transmission Date: 20190711
  Serious: Yes (Other)
  Sender: FDA-Public Use
  Company Number: US-BRISTOL-MYERS SQUIBB COMPANY-BMS-2017-118177

PATIENT
  Age: 74 Year
  Sex: Female
  Weight: 99.79 kg

DRUGS (2)
  1. ORENCIA [Suspect]
     Active Substance: ABATACEPT
     Indication: RHEUMATOID ARTHRITIS
     Dosage: 125 MG, QWK
     Route: 058
     Dates: start: 201702
  2. ORENCIA [Suspect]
     Active Substance: ABATACEPT
     Indication: SYSTEMIC LUPUS ERYTHEMATOSUS
     Dosage: 125 MG, QWK
     Route: 058
     Dates: start: 201807

REACTIONS (7)
  - Hepatic cancer [Unknown]
  - Urinary tract infection [Unknown]
  - Adverse event [Unknown]
  - Systemic lupus erythematosus [Unknown]
  - Kidney infection [Unknown]
  - Malaise [Unknown]
  - Cystitis [Unknown]

NARRATIVE: CASE EVENT DATE: 20181219
